FAERS Safety Report 14880657 (Version 1)
Quarter: 2018Q2

REPORT INFORMATION
  Report Type: Spontaneous
  Country: US (occurrence: US)
  Receive Date: 20180425
  Receipt Date: 20180425
  Transmission Date: 20180711
  Serious: Yes (Hospitalization)
  Sender: FDA-Public Use
  Company Number: None

PATIENT
  Age: 8 Year
  Sex: Male
  Weight: 22.9 kg

DRUGS (3)
  1. VINCRISTINE SULFATE. [Suspect]
     Active Substance: VINCRISTINE SULFATE
     Dates: end: 20180320
  2. ONCASPAR [Suspect]
     Active Substance: PEGASPARGASE
     Dates: end: 20180314
  3. CYCLOPHOSPHAMIDE. [Suspect]
     Active Substance: CYCLOPHOSPHAMIDE
     Dates: end: 20180227

REACTIONS (4)
  - Febrile neutropenia [None]
  - Hepatomegaly [None]
  - Pancreatic cyst [None]
  - Pulmonary mass [None]

NARRATIVE: CASE EVENT DATE: 20180323
